FAERS Safety Report 25517841 (Version 3)
Quarter: 2025Q3

REPORT INFORMATION
  Report Type: Spontaneous
  Country: JP (occurrence: JP)
  Receive Date: 20250704
  Receipt Date: 20250818
  Transmission Date: 20251021
  Serious: Yes (Death, Other)
  Sender: ALEXION PHARMACEUTICALS
  Company Number: JP-ASTRAZENECA-202506JPN024269JP

PATIENT
  Age: 88 Year
  Sex: Female

DRUGS (2)
  1. TAGRISSO [Suspect]
     Active Substance: OSIMERTINIB
     Indication: Gene mutation
     Dosage: 80 MILLIGRAM, QD
     Dates: start: 20241218, end: 20250407
  2. AMLODIPINE BESYLATE\IRBESARTAN [Concomitant]
     Active Substance: AMLODIPINE BESYLATE\IRBESARTAN
     Indication: Hypertension

REACTIONS (3)
  - Gastrointestinal haemorrhage [Fatal]
  - Interstitial lung disease [Fatal]
  - Hypotension [Unknown]

NARRATIVE: CASE EVENT DATE: 20250407
